FAERS Safety Report 7303386-3 (Version None)
Quarter: 2011Q1

REPORT INFORMATION
  Report Type: 
  Country: None (occurrence: None)
  Receive Date: 20110221
  Receipt Date: 20110216
  Transmission Date: 20110831
  Serious: Yes (Life-Threatening, Hospitalization, Other)
  Sender: FDA-Public Use
  Company Number: IE-ABBOTT-11P-229-0705851-00

PATIENT
  Sex: Male

DRUGS (2)
  1. EPILIM CHRONO TABLETS [Suspect]
     Indication: BIPOLAR DISORDER
     Route: 048
     Dates: end: 20100101
  2. EPILIM CHRONO TABLETS [Suspect]
     Dosage: AT BEDTIME
     Route: 048

REACTIONS (5)
  - ANTICONVULSANT DRUG LEVEL DECREASED [None]
  - INTENTIONAL SELF-INJURY [None]
  - MANIA [None]
  - OVERDOSE [None]
  - DEPRESSED MOOD [None]
